FAERS Safety Report 4977800-2 (Version None)
Quarter: 2006Q2

REPORT INFORMATION
  Report Type: 
  Country: None (occurrence: None)
  Receive Date: 20060417
  Receipt Date: 20060405
  Transmission Date: 20061013
  Serious: Yes (Hospitalization, Other)
  Sender: FDA-Public Use
  Company Number: 2006047622

PATIENT
  Age: 87 Year
  Sex: Female

DRUGS (15)
  1. LIPITOR [Suspect]
     Indication: ILL-DEFINED DISORDER
     Dosage: 10 MG (20 MG, 1/2 QD)
  2. PLAVIX [Suspect]
     Indication: ILL-DEFINED DISORDER
     Dosage: (75 MG)
  3. ALL OTHER THERAPEUTIC PRODUCTS (ALL OTHER THERAPEUTIC PRODUCTS) [Concomitant]
  4. FUROSEMIDE [Concomitant]
  5. CALTRATE (CALCIUM CARBONATE) [Concomitant]
  6. SYNTHROID [Concomitant]
  7. FOLIC ACID [Concomitant]
  8. KLOR-CON [Concomitant]
  9. ASPIRIN [Concomitant]
  10. LECITHIN (LECITHIN) [Concomitant]
  11. VITAMIN E [Concomitant]
  12. VITAMIN C (VITAMIN C) [Concomitant]
  13. MULTIVITAMIN [Concomitant]
  14. VITAMIN B1 TAB [Concomitant]
  15. VITAMIN B6 (VITAMIN B6) [Concomitant]

REACTIONS (4)
  - ARTHRALGIA [None]
  - MYALGIA [None]
  - SKIN DISCOLOURATION [None]
  - STENT PLACEMENT [None]
